FAERS Safety Report 4627768-3 (Version None)
Quarter: 2005Q2

REPORT INFORMATION
  Report Type: 
  Country: None (occurrence: None)
  Receive Date: 20050401
  Receipt Date: 20040712
  Transmission Date: 20051028
  Serious: Yes (Hospitalization)
  Sender: FDA-Public Use
  Company Number: 8458

PATIENT
  Age: 76 Year
  Sex: Male

DRUGS (4)
  1. AMIODARONE HCL [Suspect]
     Dosage: 200 MG
  2. LEVOTHYROXINE SODIUM [Concomitant]
  3. FRUSEMIDE [Concomitant]
  4. WARFARIN [Concomitant]

REACTIONS (4)
  - ALANINE AMINOTRANSFERASE INCREASED [None]
  - BLOOD ALKALINE PHOSPHATASE INCREASED [None]
  - INTERNATIONAL NORMALISED RATIO INCREASED [None]
  - JAUNDICE [None]
